FAERS Safety Report 17141295 (Version 1)
Quarter: 2019Q4

REPORT INFORMATION
  Report Type: Spontaneous
  Country: US (occurrence: US)
  Receive Date: 20191211
  Receipt Date: 20191211
  Transmission Date: 20200122
  Serious: Yes (Other)
  Sender: FDA-Public Use
  Company Number: US-PFIZER INC-2019533847

PATIENT
  Age: 70 Year
  Sex: Male

DRUGS (1)
  1. VYNDAQEL [Suspect]
     Active Substance: TAFAMIDIS MEGLUMINE
     Indication: AMYLOIDOSIS
     Dosage: 80 MG, UNK
     Dates: start: 2019

REACTIONS (18)
  - Neuropathy peripheral [Unknown]
  - Back pain [Unknown]
  - Peripheral swelling [Unknown]
  - Atrial flutter [Unknown]
  - Dizziness [Unknown]
  - Headache [Unknown]
  - Night sweats [Unknown]
  - Productive cough [Unknown]
  - Dyspnoea [Unknown]
  - Pollakiuria [Unknown]
  - Joint stiffness [Unknown]
  - Product use in unapproved indication [Unknown]
  - Off label use [Unknown]
  - Fatigue [Unknown]
  - Fine motor skill dysfunction [Unknown]
  - Sinus congestion [Unknown]
  - Arthralgia [Unknown]
  - Muscular weakness [Unknown]

NARRATIVE: CASE EVENT DATE: 2019
